FAERS Safety Report 18440111 (Version 2)
Quarter: 2020Q4

REPORT INFORMATION
  Report Type: Spontaneous
  Country: US (occurrence: US)
  Receive Date: 20201029
  Receipt Date: 20201110
  Transmission Date: 20210114
  Serious: Yes (Other)
  Sender: FDA-Public Use
  Company Number: US-BEH-2020124046

PATIENT
  Age: 56 Year
  Sex: Female

DRUGS (1)
  1. HIZENTRA [Suspect]
     Active Substance: HUMAN IMMUNOGLOBULIN G
     Indication: CHRONIC INFLAMMATORY DEMYELINATING POLYRADICULONEUROPATHY
     Dosage: 10 GRAM, QW
     Route: 058
     Dates: start: 202010

REACTIONS (4)
  - Product leakage [Unknown]
  - Inappropriate schedule of product administration [Unknown]
  - Nerve degeneration [Unknown]
  - No adverse event [Unknown]

NARRATIVE: CASE EVENT DATE: 202010
